FAERS Safety Report 7306713-6 (Version None)
Quarter: 2011Q1

REPORT INFORMATION
  Report Type: 
  Country: None (occurrence: None)
  Receive Date: 20110222
  Receipt Date: 20110216
  Transmission Date: 20110831
  Serious: Yes (Hospitalization)
  Sender: FDA-Public Use
  Company Number: JP-ABBOTT-11P-087-0703940-00

PATIENT
  Age: 26 Year
  Sex: Female

DRUGS (3)
  1. DIAPHENYLSULFONE [Concomitant]
     Indication: LEPROSY
     Dosage: 100 MG DAILY
     Route: 048
  2. KLARICID [Suspect]
     Indication: LEPROSY
     Dosage: 400MG DAILY
     Route: 048
  3. RIFAMPICIN [Concomitant]
     Indication: LEPROSY
     Route: 048

REACTIONS (1)
  - TYPE 2 LEPRA REACTION [None]
